FAERS Safety Report 9062765 (Version 1)
Quarter: 2013Q1

REPORT INFORMATION
  Report Type: Spontaneous
  Country: US (occurrence: US)
  Receive Date: 20130128
  Receipt Date: 20130128
  Transmission Date: 20140127
  Serious: Yes (Hospitalization)
  Sender: FDA-Public Use
  Company Number: US-BAYER-2013-008217

PATIENT
  Age: 26 Year
  Sex: Female
  Weight: 69.39 kg

DRUGS (11)
  1. YAZ [Suspect]
     Indication: POLYCYSTIC OVARIES
  2. YAZ [Suspect]
     Indication: DYSMENORRHOEA
  3. GIANVI [Suspect]
  4. YASMIN [Suspect]
  5. ZOLOFT [Concomitant]
     Dosage: 50 MG, UNK
     Route: 048
  6. ATIVAN [Concomitant]
     Indication: ANXIETY
     Dosage: 0.25 MG, PRN, DAILY
     Route: 048
  7. TRAZODONE [Concomitant]
     Dosage: 25 MG, AS NEEDED NIGHTLY
     Route: 048
  8. OXYCODONE [Concomitant]
     Indication: PAIN
  9. TYLENOL [Concomitant]
  10. MOTRIN [Concomitant]
  11. ZOFRAN [Concomitant]

REACTIONS (2)
  - Pelvic venous thrombosis [None]
  - Deep vein thrombosis [None]
